FAERS Safety Report 12926538 (Version 1)
Quarter: 2016Q4

REPORT INFORMATION
  Report Type: Spontaneous
  Country: US (occurrence: US)
  Receive Date: 20161109
  Receipt Date: 20161109
  Transmission Date: 20170207
  Serious: Yes (Hospitalization)
  Sender: FDA-Public Use
  Company Number: US-PERRIGO-16US021630

PATIENT
  Age: 46 Year
  Sex: Male

DRUGS (1)
  1. ACETAMINOPHEN. [Suspect]
     Active Substance: ACETAMINOPHEN
     Indication: PRODUCT USED FOR UNKNOWN INDICATION
     Dosage: GREATER THAN 6-7 GRAMS/DAY FOR ONE WEEK
     Route: 048

REACTIONS (2)
  - Haemolytic anaemia [Unknown]
  - Toxicity to various agents [Unknown]
